FAERS Safety Report 7264576-1 (Version None)
Quarter: 2011Q1

REPORT INFORMATION
  Report Type: 
  Country: None (occurrence: None)
  Receive Date: 20110131
  Receipt Date: 20110124
  Transmission Date: 20110831
  Serious: No
  Sender: FDA-Public Use
  Company Number: US-PFIZER INC-2011017680

PATIENT

DRUGS (2)
  1. CARBAMAZEPINE [Concomitant]
  2. PHENYTOIN [Suspect]

REACTIONS (2)
  - GINGIVAL PAIN [None]
  - TOOTHACHE [None]
